FAERS Safety Report 19691862 (Version 4)
Quarter: 2021Q4

REPORT INFORMATION
  Report Type: Report from Study
  Country: FI (occurrence: FI)
  Receive Date: 20210812
  Receipt Date: 20211116
  Transmission Date: 20220303
  Serious: Yes (Hospitalization)
  Sender: FDA-Public Use
  Company Number: FI-TAKEDA-2021TUS049037

PATIENT
  Sex: Female
  Weight: 63 kg

DRUGS (25)
  1. PARATHYROID HORMONE [Suspect]
     Active Substance: PARATHYROID HORMONE
     Indication: Hypoparathyroidism
     Dosage: 50 MICROGRAM, QD
     Route: 065
     Dates: start: 201712, end: 201803
  2. PARATHYROID HORMONE [Suspect]
     Active Substance: PARATHYROID HORMONE
     Indication: Hypoparathyroidism
     Dosage: 50 MICROGRAM, QD
     Route: 065
     Dates: start: 201712, end: 201803
  3. PARATHYROID HORMONE [Suspect]
     Active Substance: PARATHYROID HORMONE
     Indication: Hypoparathyroidism
     Dosage: 50 MICROGRAM, QD
     Route: 065
     Dates: start: 201712, end: 201803
  4. PARATHYROID HORMONE [Suspect]
     Active Substance: PARATHYROID HORMONE
     Dosage: 75 MICROGRAM, QD
     Route: 065
     Dates: start: 201803, end: 201807
  5. PARATHYROID HORMONE [Suspect]
     Active Substance: PARATHYROID HORMONE
     Dosage: 75 MICROGRAM, QD
     Route: 065
     Dates: start: 201803, end: 201807
  6. PARATHYROID HORMONE [Suspect]
     Active Substance: PARATHYROID HORMONE
     Dosage: 75 MICROGRAM, QD
     Route: 065
     Dates: start: 201803, end: 201807
  7. PARATHYROID HORMONE [Suspect]
     Active Substance: PARATHYROID HORMONE
     Dosage: 100 MICROGRAM, QD
     Route: 065
     Dates: start: 201807, end: 20181213
  8. PARATHYROID HORMONE [Suspect]
     Active Substance: PARATHYROID HORMONE
     Dosage: 100 MICROGRAM, QD
     Route: 065
     Dates: start: 201807, end: 20181213
  9. PARATHYROID HORMONE [Suspect]
     Active Substance: PARATHYROID HORMONE
     Dosage: 100 MICROGRAM, QD
     Route: 065
     Dates: start: 201807, end: 20181213
  10. PARATHYROID HORMONE [Suspect]
     Active Substance: PARATHYROID HORMONE
     Dosage: 75 MICROGRAM, QD
     Route: 065
     Dates: start: 20181214, end: 20190905
  11. PARATHYROID HORMONE [Suspect]
     Active Substance: PARATHYROID HORMONE
     Dosage: 75 MICROGRAM, QD
     Route: 065
     Dates: start: 20181214, end: 20190905
  12. PARATHYROID HORMONE [Suspect]
     Active Substance: PARATHYROID HORMONE
     Dosage: 75 MICROGRAM, QD
     Route: 065
     Dates: start: 20181214, end: 20190905
  13. TIROSINT [Concomitant]
     Active Substance: LEVOTHYROXINE SODIUM
     Indication: Hypothyroidism
     Dosage: UNK
     Route: 048
     Dates: start: 2010
  14. PROPRANOLOL HYDROCHLORIDE [Concomitant]
     Active Substance: PROPRANOLOL HYDROCHLORIDE
     Indication: Headache
     Dosage: UNK
     Route: 048
     Dates: start: 2013
  15. PROPRANOLOL HYDROCHLORIDE [Concomitant]
     Active Substance: PROPRANOLOL HYDROCHLORIDE
     Indication: Anxiety
  16. PROPRANOLOL HYDROCHLORIDE [Concomitant]
     Active Substance: PROPRANOLOL HYDROCHLORIDE
     Indication: Heart rate increased
  17. PROVIGIL [Concomitant]
     Active Substance: MODAFINIL
     Indication: Narcolepsy
     Dosage: UNK
     Route: 048
     Dates: start: 2005
  18. MAGNESIUM [Concomitant]
     Active Substance: MAGNESIUM
     Indication: Nutritional supplementation
     Dosage: UNK
     Route: 048
     Dates: start: 2012
  19. COUMADIN [Concomitant]
     Active Substance: WARFARIN SODIUM
     Indication: Deep vein thrombosis
     Dosage: UNK
     Route: 048
     Dates: start: 2013
  20. TOPAMAX [Concomitant]
     Active Substance: TOPIRAMATE
     Indication: Headache
     Dosage: UNK
     Route: 048
     Dates: start: 2014
  21. BIOTIN [Concomitant]
     Active Substance: BIOTIN
     Indication: Alopecia
     Dosage: UNK
     Route: 048
     Dates: start: 2014
  22. EFFEXOR [Concomitant]
     Active Substance: VENLAFAXINE HYDROCHLORIDE
     Indication: Anxiety
     Dosage: UNK
     Route: 048
     Dates: start: 201907
  23. EFFEXOR [Concomitant]
     Active Substance: VENLAFAXINE HYDROCHLORIDE
     Indication: Depression
  24. LUNESTA [Concomitant]
     Active Substance: ESZOPICLONE
     Indication: Insomnia
     Dosage: UNK
     Route: 048
     Dates: start: 2016
  25. METOPROLOL [Concomitant]
     Active Substance: METOPROLOL
     Indication: Heart rate increased
     Dosage: UNK
     Route: 048
     Dates: start: 20190706, end: 20191223

REACTIONS (1)
  - Mucosal inflammation [Recovered/Resolved]
